FAERS Safety Report 6095972-6 (Version None)
Quarter: 2009Q1

REPORT INFORMATION
  Report Type: 
  Country: None (occurrence: None)
  Receive Date: 20090227
  Receipt Date: 20080730
  Transmission Date: 20090719
  Serious: No
  Sender: FDA-Public Use
  Company Number: A0739881A

PATIENT
  Age: 36 Year
  Sex: Female

DRUGS (4)
  1. LAMICTAL [Suspect]
     Indication: BIPOLAR DISORDER
     Dosage: 300MG UNKNOWN
     Route: 048
  2. SEROQUEL [Concomitant]
  3. CYMBALTA [Concomitant]
  4. BUSPAR [Concomitant]

REACTIONS (4)
  - AGITATION [None]
  - DEPRESSION [None]
  - STRESS [None]
  - THINKING ABNORMAL [None]
